FAERS Safety Report 8215992-2 (Version None)
Quarter: 2012Q1

REPORT INFORMATION
  Report Type: 
  Country: None (occurrence: None)
  Receive Date: 20120316
  Receipt Date: 20120313
  Transmission Date: 20120608
  Serious: No
  Sender: FDA-Public Use
  Company Number: US-PFIZER INC-2012066547

PATIENT
  Sex: Female
  Weight: 49.887 kg

DRUGS (1)
  1. ESTRING [Suspect]
     Indication: CYSTITIS INTERSTITIAL
     Dosage: 2 MG, EVERY 3 MONTHS
     Route: 067

REACTIONS (2)
  - DRUG EFFECT DECREASED [None]
  - DRUG INEFFECTIVE [None]
